FAERS Safety Report 6078152-X (Version None)
Quarter: 2009Q1

REPORT INFORMATION
  Report Type: 
  Country: None (occurrence: None)
  Receive Date: 20090213
  Receipt Date: 20090209
  Transmission Date: 20090719
  Serious: Yes (Life-Threatening)
  Sender: FDA-Public Use
  Company Number: DE-B.I. PHARMACEUTICALS,INC./RIDGEFIELD-2009-DE-01376DE

PATIENT
  Sex: Female
  Weight: 60 kg

DRUGS (5)
  1. SIFROL [Suspect]
     Indication: PARKINSON'S DISEASE
     Dosage: 1.05MG
     Route: 048
  2. SIFROL [Suspect]
     Dosage: 1.75MG
     Route: 048
     Dates: start: 20080901, end: 20081201
  3. STALEVO 100 [Concomitant]
     Dosage: 450MG
     Route: 048
  4. AMITRIPTYLINE HCL [Concomitant]
     Dosage: 25MG
  5. CITALOPRAM HYDROBROMIDE [Concomitant]
     Dosage: 40MG

REACTIONS (3)
  - OEDEMA PERIPHERAL [None]
  - PNEUMONIA [None]
  - PULMONARY OEDEMA [None]
